FAERS Safety Report 7943539-4 (Version None)
Quarter: 2011Q4

REPORT INFORMATION
  Report Type: 
  Country: None (occurrence: None)
  Receive Date: 20111128
  Receipt Date: 20111118
  Transmission Date: 20120403
  Serious: Yes (Other)
  Sender: FDA-Public Use
  Company Number: PHHY2011GB099231

PATIENT
  Age: 74 Year
  Sex: Male
  Weight: 111 kg

DRUGS (6)
  1. HYDROMOL [Interacting]
     Indication: DRY SKIN
     Route: 061
     Dates: start: 20110915
  2. LANSOPRAZOLE [Concomitant]
  3. WARFARIN SODIUM [Suspect]
  4. BISOPROLOL FUMARATE [Concomitant]
  5. SIMVASTATIN [Concomitant]
  6. LOSARTAN POTASSIUM [Concomitant]

REACTIONS (2)
  - INTERNATIONAL NORMALISED RATIO INCREASED [None]
  - DRUG INTERACTION [None]
